FAERS Safety Report 21601061 (Version 2)
Quarter: 2023Q4

REPORT INFORMATION
  Report Type: Report from Study
  Country: US (occurrence: US)
  Receive Date: 20221116
  Receipt Date: 20231101
  Transmission Date: 20240110
  Serious: Yes (Hospitalization, Other)
  Sender: FDA-Public Use
  Company Number: US-ABBVIE-4201547

PATIENT
  Age: 61 Year
  Sex: Female

DRUGS (1)
  1. RINVOQ [Suspect]
     Active Substance: UPADACITINIB
     Indication: Rheumatoid arthritis
     Dosage: FORM STRENGTH: 15 MILLIGRAM
     Route: 048
     Dates: start: 20211027, end: 20221001

REACTIONS (6)
  - Large intestinal ulcer [Unknown]
  - SARS-CoV-2 test positive [Unknown]
  - Feeding disorder [Unknown]
  - Colitis microscopic [Recovered/Resolved with Sequelae]
  - Fluid intake reduced [Unknown]
  - Stoma site cellulitis [Unknown]

NARRATIVE: CASE EVENT DATE: 20221001
